FAERS Safety Report 22213826 (Version 1)
Quarter: 2023Q2

REPORT INFORMATION
  Report Type: Spontaneous
  Country: SI (occurrence: SI)
  Receive Date: 20230414
  Receipt Date: 20230414
  Transmission Date: 20230721
  Serious: Yes (Hospitalization, Other)
  Sender: FDA-Public Use
  Company Number: SI-BoehringerIngelheim-2023-BI-231503

PATIENT
  Age: 72 Year
  Sex: Male

DRUGS (6)
  1. SYNJARDY [Suspect]
     Active Substance: EMPAGLIFLOZIN\METFORMIN HYDROCHLORIDE
     Indication: Product used for unknown indication
     Dosage: 5 / 850 MG
  2. NOVORAPID [Concomitant]
     Active Substance: INSULIN ASPART
     Indication: Product used for unknown indication
     Dosage: 3 X 10-12 E BEFORE MAIN MEALS
  3. XARELTO [Concomitant]
     Active Substance: RIVAROXABAN
     Indication: Product used for unknown indication
  4. ATORVASTATIN CALCIUM [Concomitant]
     Active Substance: ATORVASTATIN CALCIUM
     Indication: Product used for unknown indication
  5. EUTHYROX [Concomitant]
     Active Substance: LEVOTHYROXINE SODIUM
     Indication: Product used for unknown indication
  6. Tresilba [Concomitant]
     Indication: Product used for unknown indication
     Dosage: 20 UNITES BEFORE SLEEP

REACTIONS (8)
  - Abdominal pain [Unknown]
  - Pyrexia [Recovered/Resolved]
  - Vomiting [Unknown]
  - Haemangioma of liver [Unknown]
  - Renal cyst [Unknown]
  - Diverticulum [Unknown]
  - Lung infiltration [Unknown]
  - Ketoacidosis [Unknown]

NARRATIVE: CASE EVENT DATE: 20230328
